FAERS Safety Report 16326817 (Version 1)
Quarter: 2019Q2

REPORT INFORMATION
  Report Type: Spontaneous
  Country: US (occurrence: US)
  Receive Date: 20190517
  Receipt Date: 20190517
  Transmission Date: 20190711
  Serious: Yes (Hospitalization)
  Sender: FDA-Public Use
  Company Number: US-AQUESTIVE THERAPEUTICS, INC.-2019AQU00008

PATIENT
  Age: 52 Year
  Sex: Male
  Weight: 76.42 kg

DRUGS (8)
  1. SYMPAZAN [Suspect]
     Active Substance: CLOBAZAM
     Indication: SEIZURE
     Dosage: 5 MG
     Dates: start: 20190330
  2. ATENOLOL. [Concomitant]
     Active Substance: ATENOLOL
  3. AJOVY [Concomitant]
     Active Substance: FREMANEZUMAB-VFRM
  4. LIDOCAINE. [Concomitant]
     Active Substance: LIDOCAINE
  5. TWO UNSPECIFIED ANTI-EPILEPTIC DRUGS [Concomitant]
  6. OTHER UNSPECIFIED MEDICATIONS [Concomitant]
     Active Substance: UNSPECIFIED INGREDIENT
  7. SUMATRIPTAN SUCCINATE. [Concomitant]
     Active Substance: SUMATRIPTAN SUCCINATE
  8. AMBIEN [Concomitant]
     Active Substance: ZOLPIDEM TARTRATE

REACTIONS (1)
  - Suicidal behaviour [Unknown]

NARRATIVE: CASE EVENT DATE: 201903
